FAERS Safety Report 7592111-7 (Version None)
Quarter: 2011Q3

REPORT INFORMATION
  Report Type: 
  Country: None (occurrence: None)
  Receive Date: 20110705
  Receipt Date: 20110705
  Transmission Date: 20111222
  Serious: No
  Sender: FDA-Public Use
  Company Number: None

PATIENT
  Age: 59 Year
  Sex: Female
  Weight: 84.8226 kg

DRUGS (2)
  1. VICTOZA [Suspect]
     Indication: DIABETES MELLITUS
     Dosage: .6 2X PER DAY SQ
     Route: 058
     Dates: start: 20101115, end: 20110606
  2. METFORMIN HCL [Concomitant]

REACTIONS (2)
  - DRUG EFFECT DECREASED [None]
  - DIABETES MELLITUS INADEQUATE CONTROL [None]
